FAERS Safety Report 9969918 (Version 1)
Quarter: 2014Q1

REPORT INFORMATION
  Report Type: Spontaneous
  Country: US (occurrence: None)
  Receive Date: 20140305
  Receipt Date: 20140305
  Transmission Date: 20141002
  Serious: Yes (Death)
  Sender: FDA-Public Use
  Company Number: None

PATIENT
  Age: 79 Year
  Sex: Female

DRUGS (1)
  1. IMBRUVICA 140 MG CAP, 3 CAPS ONCE DAILY JANSSEN [Suspect]
     Indication: CHRONIC LYMPHOCYTIC LEUKAEMIA
     Dosage: THREE CAPSULES ONCE DAILY BY MOUTH
     Route: 048
     Dates: start: 20131220, end: 20140224

REACTIONS (1)
  - Death [None]
